FAERS Safety Report 19201777 (Version 2)
Quarter: 2021Q3

REPORT INFORMATION
  Report Type: Report from Study
  Country: US (occurrence: US)
  Receive Date: 20210430
  Receipt Date: 20210826
  Transmission Date: 20211014
  Serious: Yes (Hospitalization, Other)
  Sender: FDA-Public Use
  Company Number: US-JNJFOC-20210447058

PATIENT
  Age: 64 Year
  Sex: Female
  Weight: 88.6 kg

DRUGS (1)
  1. SELEXIPAG [Suspect]
     Active Substance: SELEXIPAG
     Indication: PULMONARY ARTERIAL HYPERTENSION
     Route: 048

REACTIONS (8)
  - Chronic kidney disease [Unknown]
  - Septic shock [Unknown]
  - Hypertension [Unknown]
  - Unresponsive to stimuli [Unknown]
  - Liver injury [Unknown]
  - Abscess [Unknown]
  - Atrial fibrillation [Unknown]
  - Illness [Unknown]

NARRATIVE: CASE EVENT DATE: 20210411
